FAERS Safety Report 9633056 (Version 1)
Quarter: 2013Q4

REPORT INFORMATION
  Report Type: Report from Study
  Country: US (occurrence: US)
  Receive Date: 20131018
  Receipt Date: 20131018
  Transmission Date: 20140711
  Serious: Yes (Other)
  Sender: FDA-Public Use
  Company Number: US-ABBVIE-13P-163-1156536-00

PATIENT
  Age: 54 Year
  Sex: Female

DRUGS (10)
  1. HUMIRA [Suspect]
     Indication: PSORIASIS
     Dates: start: 20091021
  2. MOBIC [Concomitant]
     Indication: RHEUMATOID ARTHRITIS
  3. SUCRALFATE [Concomitant]
     Indication: DYSPEPSIA
  4. CELEXA [Concomitant]
     Indication: RHEUMATOID ARTHRITIS
  5. MELOXICAM [Concomitant]
     Indication: RHEUMATOID ARTHRITIS
  6. FUROSEMIDE [Concomitant]
     Indication: JOINT SWELLING
     Dosage: 1 1/4 TABLETS DAILY
  7. CLONAZEPAM [Concomitant]
     Indication: SLEEP DISORDER THERAPY
     Dosage: 1MG IN MORNING, 2MG AT BEDTIME
  8. OMEPRAZOLE [Concomitant]
     Indication: ANXIETY
  9. CITALOPRAM HVR [Concomitant]
     Indication: ANXIETY
  10. VITAMIN D [Concomitant]
     Indication: PRODUCT USED FOR UNKNOWN INDICATION

REACTIONS (7)
  - Hepatitis C [Unknown]
  - Synovial cyst [Recovered/Resolved]
  - Chondroplasty [Recovered/Resolved]
  - Injection site pain [Not Recovered/Not Resolved]
  - Injection site discolouration [Unknown]
  - Body fat disorder [Unknown]
  - Weight increased [Not Recovered/Not Resolved]
